FAERS Safety Report 8151333-7 (Version None)
Quarter: 2012Q1

REPORT INFORMATION
  Report Type: 
  Country: None (occurrence: None)
  Receive Date: 20120220
  Receipt Date: 20120210
  Transmission Date: 20120608
  Serious: Yes (Hospitalization)
  Sender: FDA-Public Use
  Company Number: US-BAXTER-2012BH004077

PATIENT
  Age: 83 Year
  Sex: Male

DRUGS (1)
  1. DIANEAL [Suspect]
     Indication: RENAL FAILURE CHRONIC
     Route: 033

REACTIONS (6)
  - ASTHENIA [None]
  - STAPHYLOCOCCAL INFECTION [None]
  - VERTIGO [None]
  - DIZZINESS [None]
  - PERITONITIS BACTERIAL [None]
  - WEIGHT INCREASED [None]
